FAERS Safety Report 20244738 (Version 2)
Quarter: 2022Q4

REPORT INFORMATION
  Report Type: Spontaneous
  Country: US (occurrence: US)
  Receive Date: 20211229
  Receipt Date: 20221220
  Transmission Date: 20230112
  Serious: No
  Sender: FDA-Public Use
  Company Number: US-CELLTRION INC.-2021US014724

PATIENT

DRUGS (2)
  1. TRUXIMA [Suspect]
     Active Substance: RITUXIMAB-ABBS
     Indication: Immunoglobulin G4 related disease
     Dosage: 1000 MG WEEK 0 AND WEEK 2 REPEAT CYCLE Q 6 MONTHS/ 1000 MG VIA 1 GRAM (1000 MG)
     Dates: start: 20210921
  2. TRUXIMA [Suspect]
     Active Substance: RITUXIMAB-ABBS
     Dosage: 1000 MG WEEK 0 AND WEEK 2 REPEAT CYCLE Q 6 MONTHS/ 1000 MG VIA 1 GRAM (1000 MG)
     Dates: start: 20211005

REACTIONS (1)
  - Off label use [Unknown]

NARRATIVE: CASE EVENT DATE: 20210921
